FAERS Safety Report 6423237-9 (Version None)
Quarter: 2009Q4

REPORT INFORMATION
  Report Type: 
  Country: None (occurrence: None)
  Receive Date: 20091102
  Receipt Date: 20090808
  Transmission Date: 20100525
  Serious: Yes (Other)
  Sender: FDA-Public Use
  Company Number: BR-PFIZER INC-2006068396

PATIENT
  Age: 22 Year

DRUGS (4)
  1. VIRACEPT [Suspect]
     Dosage: 500 MG, DAILY
     Route: 048
     Dates: start: 20060505, end: 20060519
  2. BIOVIR [Concomitant]
     Indication: HIV INFECTION
     Route: 048
  3. MULTI-VITAMINS [Concomitant]
     Route: 048
  4. FERROUS SULFATE TAB [Concomitant]
     Route: 048

REACTIONS (1)
  - ABORTION MISSED [None]
